FAERS Safety Report 6371142-9 (Version None)
Quarter: 2009Q3

REPORT INFORMATION
  Report Type: 
  Country: None (occurrence: None)
  Receive Date: 20090923
  Receipt Date: 20090918
  Transmission Date: 20100115
  Serious: Yes (Hospitalization)
  Sender: FDA-Public Use
  Company Number: US-MERCK-0909USA02828

PATIENT
  Age: 43 Year
  Sex: Female

DRUGS (6)
  1. JANUVIA [Suspect]
     Indication: DIABETES MELLITUS
     Route: 048
     Dates: start: 20071024, end: 20071025
  2. ESTROGENS (UNSPECIFIED) [Concomitant]
     Route: 065
  3. ZESTRIL [Concomitant]
     Route: 065
  4. NORVASC [Concomitant]
     Route: 065
  5. GLUCOTROL XL [Concomitant]
     Route: 065
  6. WELLBUTRIN [Concomitant]
     Route: 065

REACTIONS (2)
  - DIARRHOEA [None]
  - VOMITING [None]
